FAERS Safety Report 6016849-8 (Version None)
Quarter: 2008Q4

REPORT INFORMATION
  Report Type: 
  Country: None (occurrence: None)
  Receive Date: 20081222
  Receipt Date: 20081202
  Transmission Date: 20090506
  Serious: Yes (Death)
  Sender: FDA-Public Use
  Company Number: GB-GENENTECH-274218

PATIENT

DRUGS (2)
  1. BLINDED ALTEPLASE [Suspect]
     Indication: PLEURAL INFECTION
  2. BLINDED DORNASE ALFA [Suspect]
     Indication: PLEURAL INFECTION

REACTIONS (1)
  - DEATH [None]
